FAERS Safety Report 5595706-5 (Version None)
Quarter: 2008Q1

REPORT INFORMATION
  Report Type: 
  Country: None (occurrence: None)
  Receive Date: 20080118
  Receipt Date: 20080111
  Transmission Date: 20080703
  Serious: Yes (Hospitalization)
  Sender: FDA-Public Use
  Company Number: GB-AVENTIS-200714624GDDC

PATIENT
  Age: 32 Year
  Sex: Female
  Weight: 112.95 kg

DRUGS (3)
  1. LANTUS [Suspect]
     Dosage: DOSE: 10/22
     Route: 058
     Dates: start: 20040805
  2. NOVORAPID [Concomitant]
     Dates: start: 20040805
  3. DEXTROSE [Concomitant]
     Route: 048
     Dates: start: 20040101

REACTIONS (2)
  - DRUG EXPOSURE DURING PREGNANCY [None]
  - HYPERTENSION [None]
